FAERS Safety Report 5597460-X (Version None)
Quarter: 2007Q4

REPORT INFORMATION
  Report Type: 
  Country: None (occurrence: None)
  Receive Date: 20071221
  Receipt Date: 20071008
  Transmission Date: 20080405
  Serious: No
  Sender: FDA-Public Use
  Company Number: SPV1-2007-04453

PATIENT
  Age: 10 Year
  Sex: Female

DRUGS (2)
  1. VYVANSE [Suspect]
     Indication: ATTENTION DEFICIT/HYPERACTIVITY DISORDER
     Dosage: 50 MG, 1X/DAY:QD, ORAL; 70 MG, 1X/DAY:QD,ORAL
     Route: 048
     Dates: start: 20070901, end: 20070927
  2. VYVANSE [Suspect]
     Indication: ATTENTION DEFICIT/HYPERACTIVITY DISORDER
     Dosage: 50 MG, 1X/DAY:QD, ORAL; 70 MG, 1X/DAY:QD,ORAL
     Route: 048
     Dates: start: 20070928

REACTIONS (2)
  - AGGRESSION [None]
  - CRYING [None]
